FAERS Safety Report 25550688 (Version 2)
Quarter: 2025Q3

REPORT INFORMATION
  Report Type: Spontaneous
  Country: US (occurrence: US)
  Receive Date: 20250714
  Receipt Date: 20250715
  Transmission Date: 20251021
  Serious: Yes (Other)
  Sender: PFIZER
  Company Number: US-PFIZER INC-202500140290

PATIENT
  Age: 69 Year
  Sex: Female

DRUGS (28)
  1. IBRANCE [Suspect]
     Active Substance: PALBOCICLIB
     Route: 048
     Dates: start: 20230125
  2. AMLODIPINE [Concomitant]
     Active Substance: AMLODIPINE BESYLATE
  3. ATORVASTATIN [Concomitant]
     Active Substance: ATORVASTATIN
  4. BUPRENORPHINE\NALOXONE [Concomitant]
     Active Substance: BUPRENORPHINE\NALOXONE
  5. BUPRENORPHINE\NALOXONE [Concomitant]
     Active Substance: BUPRENORPHINE\NALOXONE
  6. CLONAZEPAM [Concomitant]
     Active Substance: CLONAZEPAM
  7. EZETIMIBE [Concomitant]
     Active Substance: EZETIMIBE
  8. FERROUS SULFATE [Concomitant]
     Active Substance: FERROUS SULFATE
  9. FERROUS SULFATE [Concomitant]
     Active Substance: FERROUS SULFATE
  10. FLUOXETINE [Concomitant]
     Active Substance: FLUOXETINE HYDROCHLORIDE
  11. FUROSEMIDE [Concomitant]
     Active Substance: FUROSEMIDE
  12. GLIPIZIDE [Concomitant]
     Active Substance: GLIPIZIDE
  13. HUMALOG [Concomitant]
     Active Substance: INSULIN LISPRO
  14. ISOSORBIDE MONONITRATE [Concomitant]
     Active Substance: ISOSORBIDE MONONITRATE
  15. LETROZOLE [Concomitant]
     Active Substance: LETROZOLE
  16. LOSARTAN POTASSIUM [Concomitant]
     Active Substance: LOSARTAN POTASSIUM
  17. LOSARTAN POTASSIUM [Concomitant]
     Active Substance: LOSARTAN POTASSIUM
  18. METOPROLOL SUCCINATE [Concomitant]
     Active Substance: METOPROLOL SUCCINATE
  19. METOPROLOL TARTRATE [Concomitant]
     Active Substance: METOPROLOL TARTRATE
  20. NALOXONE HCL DIHYDRATE [Concomitant]
  21. PANTOPRAZOLE [Concomitant]
     Active Substance: PANTOPRAZOLE
  22. PANTOPRAZOLE [Concomitant]
     Active Substance: PANTOPRAZOLE
  23. POTASSIUM CHLORIDE [Concomitant]
     Active Substance: POTASSIUM CHLORIDE
  24. LOSARTAN [Concomitant]
     Active Substance: LOSARTAN
  25. METOPROLOL [Concomitant]
     Active Substance: METOPROLOL
  26. ROSUVASTATIN [Concomitant]
     Active Substance: ROSUVASTATIN
  27. TRESIBA [Concomitant]
     Active Substance: INSULIN DEGLUDEC
  28. WARFARIN [Concomitant]
     Active Substance: WARFARIN

REACTIONS (1)
  - Infection [Unknown]
